FAERS Safety Report 9866664 (Version 4)
Quarter: 2018Q1

REPORT INFORMATION
  Report Type: Report from Study
  Country: US (occurrence: US)
  Receive Date: 20140204
  Receipt Date: 20180326
  Transmission Date: 20180509
  Serious: Yes (Other)
  Sender: FDA-Public Use
  Company Number: US-ROCHE-1307486

PATIENT
  Age: 6 Year
  Sex: Female
  Weight: 74.2 kg

DRUGS (21)
  1. NUTROPIN AQ [Suspect]
     Active Substance: SOMATROPIN
     Indication: GROWTH HORMONE DEFICIENCY
     Route: 058
     Dates: start: 201302, end: 20130523
  2. LEVOTHYROXINE. [Concomitant]
     Active Substance: LEVOTHYROXINE
     Indication: HYPOTHYROIDISM
     Route: 048
  3. SOLU-CORTEF [Concomitant]
     Active Substance: HYDROCORTISONE SODIUM SUCCINATE
     Route: 030
  4. FLONASE [Concomitant]
     Active Substance: FLUTICASONE PROPIONATE
     Dosage: 1 SPRAY EACH NOSTRIL
     Route: 065
  5. CLARITIN [Concomitant]
     Active Substance: LORATADINE
     Route: 048
  6. QVAR [Concomitant]
     Active Substance: BECLOMETHASONE DIPROPIONATE
     Dosage: 4 PUFFS
     Route: 065
  7. PAIN EASE MEDIUM STREAM [Concomitant]
     Route: 061
  8. LEVOTHYROXINE. [Concomitant]
     Active Substance: LEVOTHYROXINE
     Dosage: 30M INUTES BEFORE BREAK FAST
     Route: 048
  9. ALLEGRA [Concomitant]
     Active Substance: FEXOFENADINE HYDROCHLORIDE
     Route: 048
  10. EMLA [Concomitant]
     Active Substance: LIDOCAINE\PRILOCAINE
     Dosage: 1 APPLICATION
     Route: 061
  11. INSULIN [Concomitant]
     Active Substance: INSULIN NOS
  12. CORTEF [Concomitant]
     Active Substance: HYDROCORTISONE
     Indication: UPPER RESPIRATORY TRACT INFECTION
  13. BENADRYL [Concomitant]
     Active Substance: DIPHENHYDRAMINE HYDROCHLORIDE
     Route: 065
  14. NUTROPIN AQ [Suspect]
     Active Substance: SOMATROPIN
     Dosage: DAILY
     Route: 058
     Dates: start: 201309
  15. NUTROPIN AQ [Suspect]
     Active Substance: SOMATROPIN
     Route: 058
  16. CORTEF [Concomitant]
     Active Substance: HYDROCORTISONE
     Indication: SINUSITIS
     Dosage: 7.5 GM IN AM, 2.5 MG IN AFTERNOON, 2.5 MG HS
     Route: 048
  17. VENTOLIN HFA [Concomitant]
     Active Substance: ALBUTEROL SULFATE
     Route: 065
  18. ADVAIR HFA [Concomitant]
     Active Substance: FLUTICASONE PROPIONATE\SALMETEROL XINAFOATE
     Dosage: 2 PUFFD
     Route: 065
  19. POLYETHYLENE GLYCOL [Concomitant]
     Active Substance: POLYETHYLENE GLYCOLS
     Route: 048
  20. ALBUTEROL. [Concomitant]
     Active Substance: ALBUTEROL
     Dosage: 2.5 MG/3ML
     Route: 065
  21. NUTROPIN AQ [Suspect]
     Active Substance: SOMATROPIN
     Indication: HYPOPITUITARISM
     Route: 058
     Dates: start: 20130523

REACTIONS (30)
  - Pain in extremity [Unknown]
  - Cough [Unknown]
  - Epiphyses delayed fusion [Unknown]
  - Abdominal pain upper [Unknown]
  - Diarrhoea [Unknown]
  - Photophobia [Unknown]
  - Obesity [Unknown]
  - Sinusitis [Unknown]
  - Overweight [Unknown]
  - Dyspnoea [Unknown]
  - Thyroxine decreased [Unknown]
  - Upper respiratory tract infection [Unknown]
  - Dizziness [Unknown]
  - Polydipsia [Unknown]
  - Vertigo [Unknown]
  - Insulin-like growth factor decreased [Unknown]
  - Insulin-like growth factor increased [Unknown]
  - Asthma [Unknown]
  - Arthralgia [Unknown]
  - Stress [Unknown]
  - Wheezing [Unknown]
  - Fatigue [Unknown]
  - Nasal congestion [Unknown]
  - Fatigue [Unknown]
  - Temperature intolerance [Unknown]
  - Acanthosis [Unknown]
  - Weight increased [Unknown]
  - Nausea [Unknown]
  - Headache [Unknown]
  - Weight decreased [Unknown]

NARRATIVE: CASE EVENT DATE: 201305
